FAERS Safety Report 9322366 (Version 2)
Quarter: 2013Q3

REPORT INFORMATION
  Report Type: Spontaneous
  Country: IT (occurrence: IT)
  Receive Date: 20130531
  Receipt Date: 20130805
  Transmission Date: 20140515
  Serious: Yes (Hospitalization)
  Sender: FDA-Public Use
  Company Number: IT-BAYER-2013-066797

PATIENT
  Age: 77 Year
  Sex: Male

DRUGS (4)
  1. CARDIOASPIRIN [Suspect]
     Indication: PROPHYLAXIS
     Dosage: 100 MG, QD
     Route: 048
     Dates: start: 20100101
  2. COUMADIN [Suspect]
     Indication: ATRIAL FIBRILLATION
     Dosage: 5 MG, PRN
     Route: 048
     Dates: start: 20100101
  3. PANTOPRAZOLE [Concomitant]
     Dosage: DAILY DOSE 1 DF
     Route: 048
  4. LASIX [Concomitant]
     Dosage: DAILY DOSE 2 DF
     Route: 048

REACTIONS (2)
  - International normalised ratio increased [Unknown]
  - Anaemia [Unknown]
